FAERS Safety Report 4330187-0 (Version None)
Quarter: 2004Q1

REPORT INFORMATION
  Report Type: 
  Country: None (occurrence: None)
  Receive Date: 20040329
  Receipt Date: 20040315
  Transmission Date: 20041129
  Serious: Yes (Hospitalization)
  Sender: FDA-Public Use
  Company Number: 04P-144-0250270-00

PATIENT
  Age: 83 Year
  Sex: Male

DRUGS (5)
  1. BIAXIN XL [Suspect]
     Indication: CHRONIC OBSTRUCTIVE AIRWAYS DISEASE
     Dosage: 1000 MG, 1 IN 1 D, PER ORAL
     Route: 048
     Dates: start: 20031210, end: 20031211
  2. BIAXIN XL [Suspect]
     Indication: INFECTION
     Dosage: 1000 MG, 1 IN 1 D, PER ORAL
     Route: 048
     Dates: start: 20031210, end: 20031211
  3. ACETYLCYSTEINE [Suspect]
     Indication: CHRONIC OBSTRUCTIVE AIRWAYS DISEASE
     Dosage: 200 MG, 3 IN 1 D, ORAL
     Route: 048
     Dates: start: 20031210, end: 20031211
  4. ACETYLCYSTEINE [Suspect]
     Indication: INFECTION
     Dosage: 200 MG, 3 IN 1 D, ORAL
     Route: 048
     Dates: start: 20031210, end: 20031211
  5. TRIFLUSAL [Concomitant]

REACTIONS (3)
  - MELAENA [None]
  - STOMACH DISCOMFORT [None]
  - UPPER GASTROINTESTINAL HAEMORRHAGE [None]
